FAERS Safety Report 9387979 (Version 1)
Quarter: 2013Q3

REPORT INFORMATION
  Report Type: Spontaneous
  Country: IT (occurrence: IT)
  Receive Date: 20130708
  Receipt Date: 20130708
  Transmission Date: 20140515
  Serious: Yes (Hospitalization, Other)
  Sender: FDA-Public Use
  Company Number: IT-ELI_LILLY_AND_COMPANY-IT201307000153

PATIENT
  Age: 83 Year
  Sex: Male

DRUGS (11)
  1. ALIMTA [Suspect]
     Indication: PLEURAL MESOTHELIOMA
     Dosage: 1 DF, UNK
     Route: 042
     Dates: start: 20130612, end: 20130612
  2. OLPRESS [Concomitant]
  3. OMEPRAZOLE [Concomitant]
  4. LOBIDIUR [Concomitant]
  5. TIMOLOLO [Concomitant]
  6. LARGACTIL [Concomitant]
  7. FERLIXIT [Concomitant]
  8. NEORECORMON [Concomitant]
  9. BENTELAN [Concomitant]
     Dosage: UNK
  10. PLASIL [Concomitant]
  11. FOLIC ACID [Concomitant]

REACTIONS (7)
  - Anaemia [Recovering/Resolving]
  - Asthenia [Recovering/Resolving]
  - Decreased appetite [Recovering/Resolving]
  - Dyspnoea [Recovering/Resolving]
  - Palpitations [Recovering/Resolving]
  - Mucosal inflammation [Recovering/Resolving]
  - Platelet count decreased [Unknown]
